FAERS Safety Report 6531969-7 (Version None)
Quarter: 2010Q1

REPORT INFORMATION
  Report Type: 
  Country: None (occurrence: None)
  Receive Date: 20100108
  Receipt Date: 20091228
  Transmission Date: 20100710
  Serious: Yes (Death, Hospitalization)
  Sender: FDA-Public Use
  Company Number: JP-PFIZER INC-2009315292

PATIENT
  Age: 35 Year
  Sex: Male
  Weight: 75 kg

DRUGS (8)
  1. GABAPENTIN [Suspect]
     Indication: PARTIAL SEIZURES
     Dosage: 400 MG, 3X/DAY
     Route: 048
     Dates: start: 20081209
  2. GABAPENTIN [Suspect]
     Dosage: 200 MG, 3X/DAY
     Route: 048
     Dates: start: 20081208, end: 20081208
  3. ALEVIATIN [Concomitant]
     Dosage: 130 MG, 2X/DAY
     Dates: end: 20090117
  4. GASTER [Concomitant]
     Dates: end: 20090117
  5. SOLITA-T 3G [Concomitant]
     Dosage: UNK
     Route: 042
     Dates: end: 20090117
  6. GLYCEOL [Concomitant]
     Dosage: UNK
     Route: 042
  7. GARASONE [Concomitant]
     Dosage: UNK
     Route: 042
  8. ZOSYN [Concomitant]
     Route: 042
     Dates: end: 20090117

REACTIONS (2)
  - DEATH [None]
  - PNEUMONIA ASPIRATION [None]
